FAERS Safety Report 25373594 (Version 2)
Quarter: 2025Q3

REPORT INFORMATION
  Report Type: Spontaneous
  Country: JP (occurrence: JP)
  Receive Date: 20250529
  Receipt Date: 20250702
  Transmission Date: 20251021
  Serious: Yes (Hospitalization)
  Sender: ELI LILLY AND COMPANY
  Company Number: JP-ELI_LILLY_AND_COMPANY-JP202503000256

PATIENT
  Age: 72 Year
  Sex: Female
  Weight: 61 kg

DRUGS (10)
  1. VERZENIO [Suspect]
     Active Substance: ABEMACICLIB
     Indication: Breast cancer stage IV
     Route: 048
     Dates: start: 20250210, end: 20250223
  2. ANASTROZOLE [Concomitant]
     Active Substance: ANASTROZOLE
     Indication: Breast cancer stage IV
     Dosage: 1 MG, DAILY
     Dates: start: 20250210, end: 20250223
  3. ANASTROZOLE [Concomitant]
     Active Substance: ANASTROZOLE
     Dates: start: 20250314, end: 20250320
  4. ANASTROZOLE [Concomitant]
     Active Substance: ANASTROZOLE
     Dates: start: 20250404
  5. MIYA-BM [Concomitant]
     Active Substance: CLOSTRIDIUM BUTYRICUM SPORES STRAIN M-55
     Indication: Prophylaxis against diarrhoea
     Dosage: 1 DOSAGE FORM, TID
     Route: 048
     Dates: start: 20250210, end: 20250223
  6. LYRICA [Concomitant]
     Active Substance: PREGABALIN
     Indication: Spinal osteoarthritis
     Dosage: 150 MG, BID
     Route: 048
     Dates: end: 20250223
  7. LOXOPROFEN SODIUM [Concomitant]
     Active Substance: LOXOPROFEN SODIUM
     Indication: Spinal osteoarthritis
     Dosage: 60 MG, TID
     Route: 048
     Dates: end: 20250223
  8. REBAMIPIDE [Concomitant]
     Active Substance: REBAMIPIDE
     Indication: Spinal osteoarthritis
     Dosage: 100 MG, TID
     Route: 048
     Dates: end: 20250223
  9. REXULTI [Concomitant]
     Active Substance: BREXPIPRAZOLE
     Indication: Psychotic disorder
     Dosage: 1 MG, DAILY
     Route: 048
     Dates: end: 20250223
  10. ROZEREM [Concomitant]
     Active Substance: RAMELTEON
     Indication: Psychotic disorder
     Dosage: 8 MG, DAILY
     Route: 048
     Dates: end: 20250223

REACTIONS (9)
  - Liver disorder [Recovering/Resolving]
  - Delirium [Recovering/Resolving]
  - Renal impairment [Recovering/Resolving]
  - Tumour lysis syndrome [Recovering/Resolving]
  - Urinary retention [Unknown]
  - Inflammatory marker increased [Recovering/Resolving]
  - Nausea [Recovered/Resolved]
  - Vomiting [Unknown]
  - Pancytopenia [Recovered/Resolved]

NARRATIVE: CASE EVENT DATE: 20250201
